FAERS Safety Report 10877024 (Version 3)
Quarter: 2015Q2

REPORT INFORMATION
  Report Type: Spontaneous
  Country: GB (occurrence: GB)
  Receive Date: 20150302
  Receipt Date: 20150429
  Transmission Date: 20150821
  Serious: Yes (Other)
  Sender: FDA-Public Use
  Company Number: GB-TEVA-543005ACC

PATIENT
  Age: 3 Month
  Sex: Male

DRUGS (14)
  1. DEXAMETHASONE. [Suspect]
     Active Substance: DEXAMETHASONE
     Indication: PRODUCT USED FOR UNKNOWN INDICATION
     Dosage: 1.8 MILLIGRAM DAILY;
     Route: 048
     Dates: start: 20150115, end: 20150117
  2. RANITIDINE [Concomitant]
     Active Substance: RANITIDINE\RANITIDINE HYDROCHLORIDE
     Dosage: 35.4 MILLIGRAM DAILY;
     Route: 048
     Dates: start: 20150116
  3. DEXAMETHASONE. [Suspect]
     Active Substance: DEXAMETHASONE
     Dosage: .5 MILLIGRAM DAILY;
     Route: 048
     Dates: start: 20150121, end: 20150123
  4. FUROSEMIDE. [Suspect]
     Active Substance: FUROSEMIDE
     Dosage: 7.8 MILLIGRAM DAILY;
     Route: 048
     Dates: start: 20150116
  5. DEXAMETHASONE. [Suspect]
     Active Substance: DEXAMETHASONE
     Dosage: .9 MILLIGRAM DAILY;
     Route: 048
     Dates: start: 20150117, end: 20150120
  6. FUROSEMIDE. [Suspect]
     Active Substance: FUROSEMIDE
     Indication: PRODUCT USED FOR UNKNOWN INDICATION
     Dosage: 6 MILLIGRAM DAILY;
     Route: 048
     Dates: start: 20141224, end: 20150115
  7. SPIRONOLACTONE. [Suspect]
     Active Substance: SPIRONOLACTONE
     Dosage: 8.2 MILLIGRAM DAILY;
     Route: 048
     Dates: start: 20150202
  8. LACTULOSE. [Concomitant]
     Active Substance: LACTULOSE
     Indication: PRODUCT USED FOR UNKNOWN INDICATION
     Dosage: 3 ML DAILY; TO CONTINUE ON DISCHARGE. DAILY DOSE: 3 ML
     Route: 048
     Dates: start: 20141219
  9. SPIRONOLACTONE. [Suspect]
     Active Substance: SPIRONOLACTONE
     Indication: PRODUCT USED FOR UNKNOWN INDICATION
     Dosage: 6.6 MILLIGRAM DAILY;
     Route: 048
     Dates: start: 20141225, end: 20150115
  10. DEXAMETHASONE. [Suspect]
     Active Substance: DEXAMETHASONE
     Dosage: .25 MILLIGRAM DAILY;
     Route: 048
     Dates: start: 20150124
  11. PARACETAMOL [Concomitant]
     Active Substance: ACETAMINOPHEN
     Dosage: 4 TO 6 HOURLY WHEN REQUIRED
     Route: 048
     Dates: start: 20141229, end: 20150209
  12. SPIRONOLACTONE. [Suspect]
     Active Substance: SPIRONOLACTONE
     Dosage: 7.8 MILLIGRAM DAILY;
     Route: 048
     Dates: start: 20150116, end: 20150201
  13. RANITIDINE [Concomitant]
     Active Substance: RANITIDINE\RANITIDINE HYDROCHLORIDE
     Indication: PRODUCT USED FOR UNKNOWN INDICATION
     Dosage: 14.1 MILLIGRAM DAILY;
     Route: 048
     Dates: start: 20141218, end: 20150115
  14. CHLOROTHIAZIDE. [Suspect]
     Active Substance: CHLOROTHIAZIDE
     Indication: PRODUCT USED FOR UNKNOWN INDICATION
     Dosage: 82 MILLIGRAM DAILY; TO CONTINUE ON DISCHARGE, DAILY DOSE: 82 MG
     Route: 048
     Dates: start: 20150202

REACTIONS (1)
  - Rib fracture [Recovering/Resolving]

NARRATIVE: CASE EVENT DATE: 201502
